FAERS Safety Report 6144467-X (Version None)
Quarter: 2009Q2

REPORT INFORMATION
  Report Type: 
  Country: None (occurrence: None)
  Receive Date: 20090406
  Receipt Date: 20090323
  Transmission Date: 20091009
  Serious: Yes (Other)
  Sender: FDA-Public Use
  Company Number: NL-ROCHE-625413

PATIENT
  Sex: Female

DRUGS (4)
  1. ROACCUTANE [Suspect]
     Indication: ACNE
     Dosage: DOSE REPORTED AS 20 MG CAPSULE
     Route: 048
     Dates: start: 20090214, end: 20090221
  2. OMEPRAZOL [Concomitant]
     Dosage: FREQUENCY REPORTED: QD OR BID ROUTE: PER OS
     Dates: start: 20081120
  3. NAPROXEN [Concomitant]
     Dates: start: 20090127
  4. ERYTHROMYCIN [Concomitant]
     Dosage: STOP DATE: 2009 DRUG NAME REPORTED AS ERYACNE GEL
     Route: 061
     Dates: start: 20090220

REACTIONS (2)
  - SCAR PAIN [None]
  - SKIN DISCOLOURATION [None]
